FAERS Safety Report 8518818-2 (Version None)
Quarter: 2012Q3

REPORT INFORMATION
  Report Type: 
  Country: None (occurrence: None)
  Receive Date: 20120718
  Receipt Date: 20120716
  Transmission Date: 20120928
  Serious: Yes (Death)
  Sender: FDA-Public Use
  Company Number: PHHY2010DE76758

PATIENT
  Sex: Male

DRUGS (8)
  1. SIMULECT [Suspect]
     Dosage: 20 MG, UNK
     Dates: start: 20101119
  2. SIMULECT [Suspect]
     Dosage: 20 MG, UNK
     Dates: start: 20101111
  3. SIMULECT [Suspect]
     Dosage: 20 MG, UNK
     Dates: start: 20101104
  4. CORTICOSTEROIDS [Concomitant]
     Indication: PREMEDICATION
     Dosage: 25 MG/DAY
     Route: 048
     Dates: start: 20101001, end: 20101001
  5. CORTICOSTEROIDS [Concomitant]
     Dosage: UNK UKN, UNK
     Route: 048
     Dates: start: 20101104, end: 20101104
  6. SIMULECT [Suspect]
     Indication: BONE MARROW TRANSPLANT
     Dosage: ONCE EVERY WEEK, TOTAL FOR 4 TIMES
     Route: 042
     Dates: start: 20101015, end: 20101119
  7. SANDIMMUNE [Suspect]
     Indication: BONE MARROW TRANSPLANT
     Dosage: 25 MG/DAY
     Route: 048
     Dates: start: 20100301
  8. CELLCEPT [Concomitant]
     Indication: BONE MARROW TRANSPLANT
     Dosage: 500 MG, BID
     Route: 048
     Dates: start: 20100301

REACTIONS (18)
  - GENERAL PHYSICAL HEALTH DETERIORATION [None]
  - OEDEMA [None]
  - BLOOD DISORDER [None]
  - DRUG INTOLERANCE [None]
  - PENILE SWELLING [None]
  - GAIT DISTURBANCE [None]
  - RASH GENERALISED [None]
  - SKIN ULCER [None]
  - MULTI-ORGAN FAILURE [None]
  - SKIN EROSION [None]
  - OEDEMA PERIPHERAL [None]
  - MULTI-ORGAN DISORDER [None]
  - RASH [None]
  - NASAL MUCOSAL DISORDER [None]
  - CHRONIC GRAFT VERSUS HOST DISEASE [None]
  - ORAL DISORDER [None]
  - TESTICULAR SWELLING [None]
  - SKIN DISCOLOURATION [None]
